FAERS Safety Report 5746089-9 (Version None)
Quarter: 2008Q2

REPORT INFORMATION
  Report Type: 
  Country: None (occurrence: None)
  Receive Date: 20080522
  Receipt Date: 20071113
  Transmission Date: 20081010
  Serious: No
  Sender: FDA-Public Use
  Company Number: A0692976A

PATIENT

DRUGS (2)
  1. BACTROBAN [Suspect]
     Indication: FOLLICULITIS
     Route: 061
  2. UNKNOWN [Concomitant]

REACTIONS (1)
  - DRUG INEFFECTIVE [None]
